FAERS Safety Report 13583703 (Version 3)
Quarter: 2017Q3

REPORT INFORMATION
  Report Type: Spontaneous
  Country: US (occurrence: US)
  Receive Date: 20170526
  Receipt Date: 20170804
  Transmission Date: 20171127
  Serious: Yes (Other)
  Sender: FDA-Public Use
  Company Number: ALCN2017US003534

PATIENT
  Sex: Female

DRUGS (1)
  1. TEARS NATURALE FORTE [Suspect]
     Active Substance: DEXTRAN 70\GLYCERIN\HYPROMELLOSES
     Indication: PRODUCT USED FOR UNKNOWN INDICATION
     Dosage: UNK
     Route: 047
     Dates: start: 201702

REACTIONS (4)
  - Intraocular pressure increased [Unknown]
  - Eye irritation [Unknown]
  - Papilloedema [Unknown]
  - Headache [Unknown]
